FAERS Safety Report 22362176 (Version 1)
Quarter: 2023Q2

REPORT INFORMATION
  Report Type: Spontaneous
  Country: KR (occurrence: KR)
  Receive Date: 20230524
  Receipt Date: 20230524
  Transmission Date: 20230722
  Serious: No
  Sender: FDA-Public Use
  Company Number: KR-PFIZER INC-PV202300089120

PATIENT
  Sex: Male

DRUGS (1)
  1. PAXLOVID [Suspect]
     Active Substance: NIRMATRELVIR\RITONAVIR
     Indication: Nasopharyngitis
     Dosage: 3 DF (PRESUMED AS THREE TABLETS OF NIRMATRELVIR ), 2X/DAY (EVERY 12 HOURS)
     Route: 048
     Dates: start: 20230518

REACTIONS (4)
  - Product blister packaging issue [Not Recovered/Not Resolved]
  - Incorrect dose administered [Unknown]
  - Product dose omission issue [Unknown]
  - Off label use [Unknown]

NARRATIVE: CASE EVENT DATE: 20230518
